FAERS Safety Report 7807558-0 (Version None)
Quarter: 2011Q4

REPORT INFORMATION
  Report Type: 
  Country: None (occurrence: None)
  Receive Date: 20111011
  Receipt Date: 20111003
  Transmission Date: 20120403
  Serious: Yes (Other)
  Sender: FDA-Public Use
  Company Number: JP-GLAXOSMITHKLINE-B0752463A

PATIENT
  Sex: Male

DRUGS (4)
  1. MUCODYNE [Concomitant]
     Route: 048
  2. THEO-DUR [Concomitant]
     Route: 048
  3. DUTASTERIDE [Suspect]
     Indication: BENIGN PROSTATIC HYPERPLASIA
     Dosage: .5MG PER DAY
     Route: 048
  4. TAMSULOSIN HCL [Concomitant]
     Dosage: .2MG PER DAY

REACTIONS (3)
  - ATRIAL FIBRILLATION [None]
  - ARRHYTHMIA [None]
  - BREATH SOUNDS ABNORMAL [None]
